FAERS Safety Report 19134278 (Version 1)
Quarter: 2021Q2

REPORT INFORMATION
  Report Type: Spontaneous
  Country: US (occurrence: US)
  Receive Date: 20210414
  Receipt Date: 20210414
  Transmission Date: 20210717
  Serious: Yes (Other)
  Sender: FDA-Public Use
  Company Number: US-SUN PHARMACEUTICAL INDUSTRIES LTD-2021R1-291605

PATIENT
  Age: 36 Year
  Sex: Female

DRUGS (5)
  1. VECURONIUM [Suspect]
     Active Substance: VECURONIUM BROMIDE
     Indication: ANAESTHESIA
     Dosage: 0.2 MILLIGRAM/KILOGRAM
     Route: 030
  2. PROPOFOL. [Suspect]
     Active Substance: PROPOFOL
     Indication: SEDATION
     Dosage: INFUSION(25?65 MICROGRAM/KG/MIN)
     Route: 042
  3. FENTANYL. [Suspect]
     Active Substance: FENTANYL
     Indication: ANAESTHESIA
     Dosage: 10 MICROGRAM/KILOGRAM
     Route: 030
  4. MIDAZOLAM. [Suspect]
     Active Substance: MIDAZOLAM
     Indication: ANAESTHESIA
     Dosage: 3 MILLIGRAM
     Route: 065
  5. BETAMETHASONE. [Suspect]
     Active Substance: BETAMETHASONE
     Indication: MASS
     Dosage: UNK
     Route: 065

REACTIONS (3)
  - Drug ineffective [Unknown]
  - Exposure during pregnancy [Unknown]
  - Premature delivery [Unknown]
